FAERS Safety Report 10631949 (Version 1)
Quarter: 2014Q4

REPORT INFORMATION
  Report Type: Spontaneous
  Country: FR (occurrence: None)
  Receive Date: 20141203
  Receipt Date: 20141203
  Transmission Date: 20150529
  Serious: Yes (Other)
  Sender: FDA-Public Use
  Company Number: 2014HINLIT1025

PATIENT
  Age: 27 Year
  Sex: Female

DRUGS (3)
  1. PREDNISONE (PREDNISONE) [Concomitant]
     Active Substance: PREDNISONE
  2. INDOMETHACIN. [Suspect]
     Active Substance: INDOMETHACIN
     Indication: STILL^S DISEASE ADULT ONSET
  3. IVIG (INTRAVENOUS POLYVALENT IMMUNOGLOBULINS) [Concomitant]

REACTIONS (2)
  - Maternal exposure during pregnancy [None]
  - Oligohydramnios [None]
